FAERS Safety Report 7934173-0 (Version None)
Quarter: 2011Q4

REPORT INFORMATION
  Report Type: 
  Country: None (occurrence: None)
  Receive Date: 20111118
  Receipt Date: 20111107
  Transmission Date: 20120403
  Serious: Yes (Hospitalization)
  Sender: FDA-Public Use
  Company Number: MPS1-1000583

PATIENT
  Age: 2 Year
  Sex: Female
  Weight: 12.4739 kg

DRUGS (13)
  1. ACYCLOVIR [Concomitant]
  2. FLUTICASONE PROPIONATE [Concomitant]
  3. ALBUTEROL SULFATE [Concomitant]
  4. GRANISETRON [Concomitant]
  5. CYCLOSPORINE [Concomitant]
  6. FLUCONAZOLE [Concomitant]
  7. LANSOPRAZOLE [Concomitant]
  8. MAGNESIUM (MAGNESIUM) [Concomitant]
  9. LANSOPRAZOLE [Concomitant]
  10. GRAVOL (DIMENHYDRINATE) [Concomitant]
  11. ALDURAZYME [Suspect]
     Indication: MUCOPOLYSACCHARIDOSIS
     Dosage: 5.6 MG, QW, INTRAVENOUS
     Route: 042
  12. ACETYLCYSTEINE [Concomitant]
  13. AMLODIPINE [Concomitant]

REACTIONS (7)
  - KLEBSIELLA TEST POSITIVE [None]
  - DEVICE RELATED INFECTION [None]
  - CITROBACTER TEST POSITIVE [None]
  - FEBRILE NEUTROPENIA [None]
  - BACTERAEMIA [None]
  - STEM CELL TRANSPLANT [None]
  - ENTEROBACTER TEST POSITIVE [None]
